FAERS Safety Report 9161093 (Version 1)
Quarter: 2013Q1

REPORT INFORMATION
  Report Type: Spontaneous
  Country: US (occurrence: US)
  Receive Date: 20130313
  Receipt Date: 20130313
  Transmission Date: 20140127
  Serious: Yes (Hospitalization, Other)
  Sender: FDA-Public Use
  Company Number: US-009507513-2012SP018915

PATIENT
  Age: 50 Year
  Sex: Female

DRUGS (11)
  1. VICTRELIS [Suspect]
     Indication: CHRONIC HEPATITIS C
     Dosage: 800 MG, TID
     Route: 048
     Dates: start: 20120402, end: 20120613
  2. RIBAVIRIN [Suspect]
     Indication: CHRONIC HEPATITIS C
     Dosage: 1000 MG, QD
     Route: 048
     Dates: start: 20120305
  3. RIBAVIRIN [Suspect]
     Dosage: 800 MG, UNK
     Route: 048
     Dates: start: 2012
  4. RIBAVIRIN [Suspect]
     Dosage: 600 MG, UNK
     Route: 048
     Dates: start: 2012, end: 20120613
  5. PEGINTERFERON ALFA-2A [Suspect]
     Indication: CHRONIC HEPATITIS C
     Dosage: 180 MICROGRAM, QW
     Dates: start: 20120305, end: 2012
  6. PEGINTERFERON ALFA-2A [Suspect]
     Dosage: 90 MICROGRAM, QW
     Dates: end: 20120613
  7. CELEBREX [Concomitant]
     Indication: PRODUCT USED FOR UNKNOWN INDICATION
  8. OXYCODONE [Concomitant]
     Indication: PRODUCT USED FOR UNKNOWN INDICATION
  9. ALEVE [Concomitant]
     Indication: PRODUCT USED FOR UNKNOWN INDICATION
  10. HYDROCHLOROTHIAZIDE [Concomitant]
  11. KLOR-CON [Concomitant]

REACTIONS (31)
  - Red blood cell count decreased [Unknown]
  - Haemoglobin decreased [Unknown]
  - Eructation [Not Recovered/Not Resolved]
  - Dysgeusia [Not Recovered/Not Resolved]
  - Nausea [Not Recovered/Not Resolved]
  - Dry mouth [Not Recovered/Not Resolved]
  - Product taste abnormal [Unknown]
  - Injection site erythema [Unknown]
  - Back pain [Unknown]
  - Hepatic pain [Unknown]
  - Injection site pruritus [Unknown]
  - Pyrexia [Unknown]
  - Vision blurred [Unknown]
  - Hot flush [Unknown]
  - Irritability [Unknown]
  - Crying [Unknown]
  - Irritability [Unknown]
  - Loss of consciousness [Unknown]
  - Dysgeusia [Unknown]
  - Haemoptysis [Unknown]
  - Injection site rash [Unknown]
  - Rash [Unknown]
  - Stomatitis [Unknown]
  - Malaise [Unknown]
  - Asthenia [Unknown]
  - Dizziness [Unknown]
  - Crying [Unknown]
  - Visual field defect [Unknown]
  - Decreased appetite [Unknown]
  - White blood cell count decreased [Unknown]
  - Pyrexia [Unknown]
